FAERS Safety Report 4703954-9 (Version None)
Quarter: 2005Q2

REPORT INFORMATION
  Report Type: 
  Country: None (occurrence: None)
  Receive Date: 20050630
  Receipt Date: 20050621
  Transmission Date: 20051028
  Serious: Yes (Congenital Anomaly, Other)
  Sender: FDA-Public Use
  Company Number: FR-ABBOTT-05P-056-0304158-00

PATIENT
  Age: 0 Day
  Sex: Female

DRUGS (1)
  1. VALPROATE SODIUM [Suspect]
     Indication: DRUG EXPOSURE DURING PREGNANCY

REACTIONS (10)
  - ANTERIOR CHAMBER CLEAVAGE SYNDROME [None]
  - CONGENITAL ARTERIAL MALFORMATION [None]
  - CONGENITAL ORAL MALFORMATION [None]
  - CRANIOSYNOSTOSIS [None]
  - FACIAL DYSMORPHISM [None]
  - FOETAL VALPROATE SYNDROME [None]
  - HAND DEFORMITY [None]
  - PLAGIOCEPHALY [None]
  - SEVERE MENTAL RETARDATION [None]
  - SKULL MALFORMATION [None]
